FAERS Safety Report 9377125 (Version 1)
Quarter: 2013Q3

REPORT INFORMATION
  Report Type: Spontaneous
  Country: US (occurrence: US)
  Receive Date: 20130701
  Receipt Date: 20130701
  Transmission Date: 20140515
  Serious: Yes (Other)
  Sender: FDA-Public Use
  Company Number: US-PFIZER INC-2013194381

PATIENT
  Age: 46 Year
  Sex: Female
  Weight: 92.97 kg

DRUGS (3)
  1. CHANTIX [Suspect]
     Indication: SMOKING CESSATION THERAPY
     Dosage: UNK
     Dates: start: 2008, end: 2008
  2. ESTRADIOL [Concomitant]
     Dosage: 1 MG, DAILY
  3. MEDROXYPROGESTERONE ACETATE [Concomitant]
     Dosage: 2.5 MG, DAILY

REACTIONS (3)
  - Paranoia [Unknown]
  - Thinking abnormal [Unknown]
  - Fear [Unknown]
